FAERS Safety Report 8966430 (Version 2)
Quarter: 2013Q1

REPORT INFORMATION
  Report Type: Spontaneous
  Country: JP (occurrence: JP)
  Receive Date: 20121214
  Receipt Date: 20130122
  Transmission Date: 20140127
  Serious: Yes (Hospitalization)
  Sender: FDA-Public Use
  Company Number: JP-GLAXOSMITHKLINE-B0852300A

PATIENT
  Age: 75 Year
  Sex: Female
  Weight: 56 kg

DRUGS (2)
  1. HYCAMTIN [Suspect]
     Indication: OVARIAN CANCER RECURRENT
     Dosage: 1.5MGM2 PER DAY
     Dates: start: 20120423
  2. DECADRON [Concomitant]
     Route: 042
     Dates: start: 20120423, end: 20120810

REACTIONS (9)
  - Febrile neutropenia [Recovered/Resolved]
  - Fatigue [Recovered/Resolved]
  - White blood cell count decreased [Recovered/Resolved]
  - Neutrophil count decreased [Recovered/Resolved]
  - Red blood cell count decreased [Recovering/Resolving]
  - Anaemia [Recovering/Resolving]
  - Platelet count decreased [Recovered/Resolved]
  - Constipation [Recovered/Resolved]
  - Decreased appetite [Recovered/Resolved]
